FAERS Safety Report 7568264-3 (Version None)
Quarter: 2011Q2

REPORT INFORMATION
  Report Type: 
  Country: None (occurrence: None)
  Receive Date: 20110623
  Receipt Date: 20110614
  Transmission Date: 20111010
  Serious: Yes (Death, Hospitalization)
  Sender: FDA-Public Use
  Company Number: US-ROCHE-759669

PATIENT
  Sex: Female

DRUGS (6)
  1. CARBOPLATIN [Suspect]
     Indication: BREAST CANCER
     Dosage: DOSE: 6 AUC
     Route: 042
     Dates: start: 20101103
  2. DEXAMETHASONE [Concomitant]
     Dates: start: 20101102
  3. DOCETAXEL [Suspect]
     Indication: BREAST CANCER
     Dosage: DOSE: 6 AUC
     Route: 042
     Dates: start: 20101103
  4. PEGFILGRASTIM [Concomitant]
     Dates: start: 20101104, end: 20110127
  5. TRASTUZUMAB [Suspect]
     Indication: BREAST CANCER
     Dosage: LOADING DOSE: 4 MG/KG, THEN 2 MG/KG.
     Route: 042
     Dates: start: 20101103
  6. PROPRANOLOL HYDROCHLORIDE [Concomitant]
     Dates: start: 20070101

REACTIONS (2)
  - PULMONARY EMBOLISM [None]
  - PNEUMONIA [None]
